FAERS Safety Report 8041703-X (Version None)
Quarter: 2012Q1

REPORT INFORMATION
  Report Type: 
  Country: None (occurrence: None)
  Receive Date: 20120112
  Receipt Date: 20120109
  Transmission Date: 20120608
  Serious: Yes (Other)
  Sender: FDA-Public Use
  Company Number: US-JNJFOC-20120103575

PATIENT
  Age: 36 Year
  Sex: Female
  Weight: 56.25 kg

DRUGS (2)
  1. ORTHO TRI-CYCLEN [Concomitant]
     Indication: CONTRACEPTION
     Dosage: 3 YEARS
     Route: 065
  2. LISTERINE TOTAL CARE PLUS WHITENING [Suspect]
     Indication: DENTAL DISORDER PROPHYLAXIS
     Dosage: HALF CAP ONCE DAILY
     Route: 048
     Dates: start: 20120102, end: 20120105

REACTIONS (1)
  - CANDIDIASIS [None]
